FAERS Safety Report 5814923-X (Version None)
Quarter: 2008Q3

REPORT INFORMATION
  Report Type: 
  Country: None (occurrence: None)
  Receive Date: 20080718
  Receipt Date: 20080714
  Transmission Date: 20090109
  Serious: Yes (Hospitalization)
  Sender: FDA-Public Use
  Company Number: US-VALEANT-2008VX001420

PATIENT
  Age: 26 Year
  Sex: Male
  Weight: 63 kg

DRUGS (2)
  1. LIBRAX [Suspect]
     Indication: IRRITABLE BOWEL SYNDROME
     Route: 048
     Dates: start: 20080628
  2. LIBRAX [Suspect]
     Route: 048
     Dates: start: 20080101

REACTIONS (4)
  - CLOSTRIDIAL INFECTION [None]
  - HYPERGLYCAEMIA [None]
  - POLLAKIURIA [None]
  - TYPE 1 DIABETES MELLITUS [None]
